FAERS Safety Report 7629453-2 (Version None)
Quarter: 2011Q3

REPORT INFORMATION
  Report Type: 
  Country: None (occurrence: None)
  Receive Date: 20110715
  Receipt Date: 20110705
  Transmission Date: 20111222
  Serious: Yes (Other)
  Sender: FDA-Public Use
  Company Number: OMPQ-NO-1107S-0639

PATIENT
  Age: 22 Year
  Sex: Female

DRUGS (1)
  1. OMNIPAQUE 70 [Suspect]
     Indication: PRODUCT USED FOR UNKNOWN INDICATION
     Dosage: 70 ML, SINGLE DOSE, INTRAVENOUS
     Route: 042
     Dates: start: 20110608, end: 20110608

REACTIONS (1)
  - INFUSION SITE EXTRAVASATION [None]
